FAERS Safety Report 4886678-7 (Version None)
Quarter: 2006Q1

REPORT INFORMATION
  Report Type: 
  Country: None (occurrence: None)
  Receive Date: 20060119
  Receipt Date: 20060111
  Transmission Date: 20060701
  Serious: Yes (Hospitalization)
  Sender: FDA-Public Use
  Company Number: 2005JP002448

PATIENT
  Age: 47 Year
  Sex: Female

DRUGS (8)
  1. PROGRAF [Suspect]
     Indication: MYASTHENIA GRAVIS
     Dosage: SEE IMAGE
     Route: 048
     Dates: start: 20050808, end: 20050821
  2. PROGRAF [Suspect]
     Indication: MYASTHENIA GRAVIS
     Dosage: SEE IMAGE
     Route: 048
     Dates: start: 20050822, end: 20050921
  3. PROGRAF [Suspect]
     Indication: MYASTHENIA GRAVIS
     Dosage: SEE IMAGE
     Route: 048
     Dates: start: 20050922, end: 20051215
  4. PREDNISOLONE [Concomitant]
  5. MYTELASE (AMBENONIUM CHLORIDE) TABLET [Concomitant]
  6. VOLTAREN - SLOW RELEASE ^CIBA-GEIGY^ CAPSULE [Concomitant]
  7. BAYASPIRIN TABLET [Concomitant]
  8. FOLIAMIN (FOLIC ACID) TABLET [Concomitant]

REACTIONS (2)
  - DIVERTICULAR PERFORATION [None]
  - PERITONITIS [None]
